FAERS Safety Report 16074491 (Version 1)
Quarter: 2019Q1

REPORT INFORMATION
  Report Type: Report from Study
  Country: CO (occurrence: CO)
  Receive Date: 20190314
  Receipt Date: 20190314
  Transmission Date: 20190418
  Serious: Yes (Hospitalization)
  Sender: FDA-Public Use
  Company Number: CO-ACTELION-A-NJ2019-187642

PATIENT
  Age: 38 Year
  Sex: Female

DRUGS (4)
  1. VENTAVIS [Suspect]
     Active Substance: ILOPROST
     Dosage: 4 NEBULIZATIONS A DAY
     Route: 055
     Dates: start: 20190115, end: 20190118
  2. VENTAVIS [Suspect]
     Active Substance: ILOPROST
     Indication: PULMONARY ARTERIAL HYPERTENSION
     Dosage: 6 NEBULIZATION PER DAY
     Route: 055
     Dates: start: 20190112, end: 201901
  3. ADEMPAS [Suspect]
     Active Substance: RIOCIGUAT
     Indication: PRODUCT USED FOR UNKNOWN INDICATION
     Dosage: UNK
     Route: 065
     Dates: start: 20170223
  4. OPSUMIT [Concomitant]
     Active Substance: MACITENTAN
     Dosage: UNK

REACTIONS (15)
  - Throat irritation [Unknown]
  - Peripheral swelling [Unknown]
  - Intentional product misuse [Unknown]
  - Pleural effusion [Unknown]
  - Headache [Unknown]
  - Abdominal pain upper [Unknown]
  - Back pain [Unknown]
  - Painful respiration [Unknown]
  - Eating disorder [Unknown]
  - Incorrect product administration duration [Unknown]
  - Chest pain [Unknown]
  - Cardiomegaly [Unknown]
  - Pain in jaw [Unknown]
  - Tachycardia [Unknown]
  - Erythema [Unknown]
